FAERS Safety Report 15821082 (Version 1)
Quarter: 2019Q1

REPORT INFORMATION
  Report Type: Spontaneous
  Country: US (occurrence: US)
  Receive Date: 20190112
  Receipt Date: 20190112
  Transmission Date: 20190417
  Serious: No
  Sender: FDA-Public Use
  Company Number: None

PATIENT
  Age: 58 Year
  Sex: Female
  Weight: 65.25 kg

DRUGS (1)
  1. LOW DOSE NALTREXONE [Suspect]
     Active Substance: NALTREXONE
     Indication: NEURALGIA
     Route: 048

REACTIONS (3)
  - Sleep disorder [None]
  - Dysuria [None]
  - Abdominal pain [None]

NARRATIVE: CASE EVENT DATE: 20181215
